FAERS Safety Report 22117546 (Version 1)
Quarter: 2023Q1

REPORT INFORMATION
  Report Type: Report from Study
  Country: US (occurrence: US)
  Receive Date: 20230321
  Receipt Date: 20230321
  Transmission Date: 20230417
  Serious: Yes (Hospitalization)
  Sender: FDA-Public Use
  Company Number: US-ABBVIE-4696668

PATIENT
  Age: 47 Year
  Sex: Female

DRUGS (2)
  1. HUMIRA [Suspect]
     Active Substance: ADALIMUMAB
     Indication: Rheumatoid arthritis
     Dosage: CITRATE FREE
     Route: 058
     Dates: start: 20221108
  2. HUMIRA [Suspect]
     Active Substance: ADALIMUMAB
     Dosage: CITRATE FREE
     Route: 058

REACTIONS (10)
  - Mental disorder [Recovered/Resolved]
  - Nausea [Recovering/Resolving]
  - Stress [Recovering/Resolving]
  - Depression [Recovering/Resolving]
  - SARS-CoV-2 test positive [Recovering/Resolving]
  - Post-traumatic stress disorder [Recovering/Resolving]
  - Paraesthesia [Recovering/Resolving]
  - Depression [Recovered/Resolved]
  - Gait disturbance [Recovering/Resolving]
  - Dyspnoea [Recovering/Resolving]

NARRATIVE: CASE EVENT DATE: 20221115
